FAERS Safety Report 7487575-3 (Version None)
Quarter: 2011Q2

REPORT INFORMATION
  Report Type: 
  Country: None (occurrence: None)
  Receive Date: 20110511
  Receipt Date: 20110417
  Transmission Date: 20111010
  Serious: Yes (Death)
  Sender: FDA-Public Use
  Company Number: GB-DEXPHARM-20110452

PATIENT
  Age: 30 Year
  Sex: Female

DRUGS (6)
  1. CITALOPRAM HYDROBROMIDE [Suspect]
     Dosage: BUCCAL
     Route: 002
     Dates: start: 20110202
  2. LORAZEPAM [Concomitant]
  3. RISPERIDONE [Concomitant]
  4. SYMBICORT [Concomitant]
  5. CHLORHEXIDINE GLUCONATE [Suspect]
     Dosage: BUCCAL
     Route: 002
  6. CITALOPRAM HYDROBROMIDE [Concomitant]

REACTIONS (1)
  - ANAPHYLACTIC REACTION [None]
